FAERS Safety Report 25425934 (Version 1)
Quarter: 2025Q2

REPORT INFORMATION
  Report Type: Spontaneous
  Country: US (occurrence: US)
  Receive Date: 20250612
  Receipt Date: 20250612
  Transmission Date: 20250717
  Serious: No
  Sender: PIRAMAL
  Company Number: US-PCCINC-2025-PPL-000332

PATIENT

DRUGS (1)
  1. GABLOFEN [Suspect]
     Active Substance: BACLOFEN
     Indication: Product used for unknown indication
     Dosage: 145.1 MICROGRAM, QD
     Route: 037

REACTIONS (1)
  - Implant site mass [Recovered/Resolved]
